FAERS Safety Report 5603421-4 (Version None)
Quarter: 2008Q1

REPORT INFORMATION
  Report Type: 
  Country: None (occurrence: None)
  Receive Date: 20080123
  Receipt Date: 20080111
  Transmission Date: 20080703
  Serious: Yes (Hospitalization)
  Sender: FDA-Public Use
  Company Number: 2008-170451-NL

PATIENT
  Age: 86 Year
  Sex: Female

DRUGS (9)
  1. MIRTAZAPINE [Suspect]
     Dosage: 45 MG/20 MG/450 MG ORAL
     Route: 048
     Dates: start: 20070915, end: 20070924
  2. MIRTAZAPINE [Suspect]
     Dosage: 45 MG/20 MG/450 MG ORAL
     Route: 048
     Dates: start: 20070925, end: 20070925
  3. MIRTAZAPINE [Suspect]
     Dosage: 45 MG/20 MG/450 MG ORAL
     Route: 048
     Dates: start: 20070926, end: 20070926
  4. HYDROXYZINE HYDROCHLORIDE [Suspect]
     Dosage: 1 DF
     Dates: end: 20070926
  5. GLICLAZIDE [Concomitant]
  6. DILTIAZEM HCL [Concomitant]
  7. FUROSEMIDE [Concomitant]
  8. ZOPICLONE [Concomitant]
  9. CYAMEMAZINE [Concomitant]

REACTIONS (8)
  - CONVULSION [None]
  - DRUG LEVEL ABOVE THERAPEUTIC [None]
  - DRUG PRESCRIBING ERROR [None]
  - ILL-DEFINED DISORDER [None]
  - INCORRECT DOSE ADMINISTERED [None]
  - LOSS OF CONSCIOUSNESS [None]
  - RESPIRATORY ARREST [None]
  - VOMITING [None]
